FAERS Safety Report 13637682 (Version 2)
Quarter: 2017Q2

REPORT INFORMATION
  Report Type: Spontaneous
  Country: MX (occurrence: MX)
  Receive Date: 20170609
  Receipt Date: 20170630
  Transmission Date: 20170830
  Serious: Yes (Hospitalization, Other)
  Sender: FDA-Public Use
  Company Number: MX-BIOMARINAP-MX-2017-114256

PATIENT
  Age: 16 Year
  Sex: Female
  Weight: 14.4 kg

DRUGS (2)
  1. ALDURAZYME [Suspect]
     Active Substance: LARONIDASE
     Indication: MUCOPOLYSACCHARIDOSIS I
     Dosage: UNK, QW
     Route: 041
     Dates: end: 20170529
  2. ALDURAZYME [Suspect]
     Active Substance: LARONIDASE
     Dosage: UNK
     Route: 041

REACTIONS (4)
  - Pyrexia [Recovered/Resolved]
  - Skin discolouration [Recovered/Resolved]
  - Rash [Recovered/Resolved]
  - Respiratory tract infection [Recovered/Resolved]

NARRATIVE: CASE EVENT DATE: 20170529
